FAERS Safety Report 4290152-9 (Version None)
Quarter: 2004Q1

REPORT INFORMATION
  Report Type: 
  Country: None (occurrence: None)
  Receive Date: 20040210
  Receipt Date: 20020102
  Transmission Date: 20041129
  Serious: Yes (Life-Threatening, Other)
  Sender: FDA-Public Use
  Company Number: US-BRISTOL-MYERS SQUIBB COMPANY-11722253

PATIENT
  Age: 32 Year
  Sex: Female

DRUGS (1)
  1. STADOL [Suspect]
     Route: 045
     Dates: start: 19960924

REACTIONS (4)
  - COLON CANCER [None]
  - DEPENDENCE [None]
  - DRUG WITHDRAWAL SYNDROME [None]
  - SUICIDE ATTEMPT [None]
